FAERS Safety Report 6907371-2 (Version None)
Quarter: 2010Q3

REPORT INFORMATION
  Report Type: 
  Country: None (occurrence: None)
  Receive Date: 20100802
  Receipt Date: 20100719
  Transmission Date: 20110219
  Serious: Yes (Hospitalization)
  Sender: FDA-Public Use
  Company Number: IDA-00386

PATIENT
  Age: 37 Year
  Sex: Female

DRUGS (8)
  1. PROPRANOLOL [Suspect]
     Indication: MIGRAINE
     Dosage: 20 MG ONCE, ORAL FORMULATION: TABLET
     Route: 048
     Dates: start: 20100307, end: 20100307
  2. ZOMIG [Suspect]
     Indication: MIGRAINE
     Dosage: 2.5 MG, PRN, ORAL FORMULATION: FASTMELT
     Route: 048
     Dates: start: 20100223, end: 20100306
  3. RELPAX [Suspect]
     Indication: MIGRAINE
     Dosage: 40 MG ONCE, ORAL FORMULATION: UNKNOWN
     Dates: start: 20100307, end: 20100307
  4. ACETAMINOPHEN [Concomitant]
  5. VIDORA (INDORAMIN) [Concomitant]
  6. TRIELLA (ETHINYLESTRADIOL, NORETHISTERONE) [Concomitant]
  7. ZOLPIDEM TARTRATE [Concomitant]
  8. PRAZEPAM [Concomitant]

REACTIONS (3)
  - ARTERIOSCLEROSIS CORONARY ARTERY [None]
  - ELECTROCARDIOGRAM ST SEGMENT ELEVATION [None]
  - PRINZMETAL ANGINA [None]
